FAERS Safety Report 15757342 (Version 1)
Quarter: 2018Q4

REPORT INFORMATION
  Report Type: Spontaneous
  Country: CA (occurrence: CA)
  Receive Date: 20181224
  Receipt Date: 20181224
  Transmission Date: 20190205
  Serious: Yes (Other)
  Sender: FDA-Public Use
  Company Number: CA-OTSUKA-2017_001655

PATIENT
  Age: 55 Year
  Sex: Female
  Weight: 63 kg

DRUGS (12)
  1. ABILIFY [Suspect]
     Active Substance: ARIPIPRAZOLE
     Indication: DELUSIONAL DISORDER, UNSPECIFIED TYPE
     Dosage: 5 MG, UNK
     Route: 048
     Dates: start: 20161121
  2. ABILIFY [Interacting]
     Active Substance: ARIPIPRAZOLE
     Dosage: 7 MG, UNK
     Route: 048
     Dates: start: 20161127
  3. ABILIFY [Interacting]
     Active Substance: ARIPIPRAZOLE
     Dosage: 7 MG, UNK
     Route: 048
     Dates: start: 20161213, end: 20170130
  4. SYNTHROID [Interacting]
     Active Substance: LEVOTHYROXINE SODIUM
     Indication: HYPOTHYROIDISM
     Dosage: 75 MG, QD
     Route: 048
  5. FLORINEF ACETATE [Concomitant]
     Active Substance: FLUDROCORTISONE ACETATE
     Indication: ADDISON^S DISEASE
     Dosage: 0.1 MG, QD
     Route: 048
  6. ABILIFY [Interacting]
     Active Substance: ARIPIPRAZOLE
     Dosage: 7 MG, QD (1 EVERY DAY (S))
     Route: 048
     Dates: start: 20161121
  7. ABILIFY [Interacting]
     Active Substance: ARIPIPRAZOLE
     Dosage: 10 MG, UNK
     Route: 048
     Dates: start: 20161130
  8. CORTEF [Interacting]
     Active Substance: HYDROCORTISONE
     Dosage: 10 MG, UNK
     Route: 048
     Dates: start: 20170130
  9. CORTEF [Interacting]
     Active Substance: HYDROCORTISONE
     Dosage: 10 MG, BID (HYDROCORTISONE 10 MG TWICE DAILY)
     Route: 048
     Dates: start: 20170106
  10. CORTEF [Interacting]
     Active Substance: HYDROCORTISONE
     Indication: ADDISON^S DISEASE
     Dosage: 10 MG, QID (HYDROCORTISONE 20+10 MG )
     Route: 048
     Dates: start: 20170105
  11. CORTEF [Interacting]
     Active Substance: HYDROCORTISONE
     Dosage: 10 MG, TID
     Route: 048
     Dates: start: 20170109
  12. CORTEF [Interacting]
     Active Substance: HYDROCORTISONE
     Dosage: 10 MG, QID
     Route: 048
     Dates: start: 20170127

REACTIONS (3)
  - Drug interaction [Unknown]
  - Product use in unapproved indication [Unknown]
  - Addison^s disease [Unknown]
